FAERS Safety Report 18104642 (Version 1)
Quarter: 2020Q3

REPORT INFORMATION
  Report Type: Report from Study
  Country: CA (occurrence: CA)
  Receive Date: 20200803
  Receipt Date: 20200803
  Transmission Date: 20201103
  Serious: Yes (Other)
  Sender: FDA-Public Use
  Company Number: CA-JNJFOC-20200738808

PATIENT
  Age: 12 Year
  Sex: Male
  Weight: 53 kg

DRUGS (1)
  1. REMICADE [Suspect]
     Active Substance: INFLIXIMAB
     Indication: CROHN^S DISEASE
     Route: 042

REACTIONS (5)
  - Platelet count decreased [Unknown]
  - Autoimmune disorder [Unknown]
  - Off label use [Unknown]
  - Coagulopathy [Unknown]
  - Product use issue [Unknown]

NARRATIVE: CASE EVENT DATE: 202004
